FAERS Safety Report 9219885 (Version 2)
Quarter: 2013Q2

REPORT INFORMATION
  Report Type: Spontaneous
  Country: US (occurrence: US)
  Receive Date: 20130409
  Receipt Date: 20130426
  Transmission Date: 20140414
  Serious: No
  Sender: FDA-Public Use
  Company Number: US-PFIZER INC-2013109606

PATIENT
  Age: 63 Year
  Sex: Female
  Weight: 77.1 kg

DRUGS (13)
  1. XELJANZ [Suspect]
     Dosage: 5 MG, 2X/DAY
     Route: 048
  2. GABAPENTIN [Suspect]
     Dosage: 100 MG, UNK
  3. ZOLOFT [Concomitant]
     Dosage: 25 MG, UNK
  4. MELOXICAM [Concomitant]
     Dosage: 7.5 MG, UNK
  5. METHOTREXATE [Concomitant]
     Dosage: 2.5 MG, UNK
  6. SYNTHROID [Concomitant]
     Dosage: 50 UG, UNK
  7. LOTREL [Concomitant]
     Dosage: 10-20 MG
  8. PRAVASTATIN [Concomitant]
     Dosage: 20 MG, UNK
  9. CALCIUM [Concomitant]
     Dosage: 500 TAB
  10. ASPIRIN [Concomitant]
     Dosage: 81 MG, UNK
  11. FENOFIBRIC ACID [Concomitant]
     Dosage: 35 MG, UNK
  12. GLUCOSAMINE [Concomitant]
     Dosage: UNK
  13. CHONDROITIN [Concomitant]
     Dosage: UNK

REACTIONS (1)
  - Headache [Unknown]
